FAERS Safety Report 13593533 (Version 1)
Quarter: 2017Q2

REPORT INFORMATION
  Report Type: Report from Study
  Country: IN (occurrence: IN)
  Receive Date: 20170530
  Receipt Date: 20170530
  Transmission Date: 20170830
  Serious: Yes (Other)
  Sender: FDA-Public Use
  Company Number: IN-ELI_LILLY_AND_COMPANY-IN201705009307

PATIENT

DRUGS (5)
  1. 5 FU [Concomitant]
     Active Substance: FLUOROURACIL
     Indication: SQUAMOUS CELL CARCINOMA OF HEAD AND NECK
     Dosage: 500 TO 750 MG/M2 FOR 3 DAYS UNDER CONTINUOUS INFUSION   , OTHER
     Route: 042
  2. CETUXIMAB. [Suspect]
     Active Substance: CETUXIMAB
     Indication: SQUAMOUS CELL CARCINOMA OF HEAD AND NECK
     Dosage: 400 MG/M2, SINGLE
     Route: 042
  3. CISPLATIN. [Concomitant]
     Active Substance: CISPLATIN
     Indication: SQUAMOUS CELL CARCINOMA OF HEAD AND NECK
     Dosage: 60 TO 75 MG/M2 OVER 60 MINUTES INFUSION  , OTHER
     Route: 042
  4. CARBOPLATIN. [Concomitant]
     Active Substance: CARBOPLATIN
     Indication: SQUAMOUS CELL CARCINOMA OF HEAD AND NECK
     Dosage: 5 AUC 90 MINUTES INFUSION IN 5 PERCENT DEXTROSE   , OTHER
     Route: 042
  5. CETUXIMAB. [Suspect]
     Active Substance: CETUXIMAB
     Dosage: 250 MG/M2, WEEKLY (1/W)
     Route: 042

REACTIONS (1)
  - Febrile neutropenia [Unknown]
